FAERS Safety Report 8785518 (Version 1)
Quarter: 2012Q4

REPORT INFORMATION
  Report Type: Spontaneous
  Country: US (occurrence: None)
  Receive Date: 20120830
  Receipt Date: 20120830
  Transmission Date: 20130627
  Serious: Yes (Other)
  Sender: FDA-Public Use
  Company Number: A0991070A

PATIENT
  Sex: Male

DRUGS (2)
  1. CALCIUM CARBONATE [Suspect]
  2. LYSERGIDE [Suspect]

REACTIONS (1)
  - Drug abuser [None]
